FAERS Safety Report 7590383-6 (Version None)
Quarter: 2011Q3

REPORT INFORMATION
  Report Type: 
  Country: None (occurrence: None)
  Receive Date: 20110705
  Receipt Date: 20110524
  Transmission Date: 20111222
  Serious: Yes (Hospitalization, Other)
  Sender: FDA-Public Use
  Company Number: DO-BAYER-2011-045003

PATIENT
  Age: 68 Year
  Sex: Female

DRUGS (1)
  1. ULTRAVIST 150 [Suspect]
     Indication: COMPUTERISED TOMOGRAM
     Dosage: UNK
     Dates: start: 20100227, end: 20100227

REACTIONS (7)
  - CARDIOGENIC SHOCK [None]
  - CEREBROVASCULAR ACCIDENT [None]
  - HYPOTENSION [None]
  - LOSS OF CONSCIOUSNESS [None]
  - NERVOUS SYSTEM DISORDER [None]
  - PULMONARY OEDEMA [None]
  - PRODUCTIVE COUGH [None]
